FAERS Safety Report 4808151-4 (Version None)
Quarter: 2005Q4

REPORT INFORMATION
  Report Type: 
  Country: None (occurrence: None)
  Receive Date: 20051021
  Receipt Date: 20021122
  Transmission Date: 20060501
  Serious: No
  Sender: FDA-Public Use
  Company Number: USA021124131

PATIENT
  Age: 43 Year
  Sex: Female
  Weight: 114 kg

DRUGS (3)
  1. ZYPREXA [Suspect]
     Indication: MENTAL DISORDER
     Dosage: 15 MG/DAY
  2. GEODON [Concomitant]
  3. KLONOPIN [Concomitant]

REACTIONS (3)
  - HUNGER [None]
  - MENSTRUAL DISORDER [None]
  - WEIGHT INCREASED [None]
